FAERS Safety Report 16998497 (Version 1)
Quarter: 2019Q4

REPORT INFORMATION
  Report Type: Spontaneous
  Country: US (occurrence: US)
  Receive Date: 20191106
  Receipt Date: 20191106
  Transmission Date: 20200122
  Serious: No
  Sender: FDA-Public Use
  Company Number: US-AJANTA PHARMA USA INC.-2076497

PATIENT
  Age: 60 Year
  Sex: Male
  Weight: 111.36 kg

DRUGS (14)
  1. ATORVASTATIN CALCIUM. [Concomitant]
     Active Substance: ATORVASTATIN CALCIUM
  2. FUROSEMIDE. [Concomitant]
     Active Substance: FUROSEMIDE
  3. GLIPIZIDE XL [Concomitant]
     Active Substance: GLIPIZIDE
  4. MAGNESIUM OXIDE. [Concomitant]
     Active Substance: MAGNESIUM OXIDE
  5. CLONIDINE. [Concomitant]
     Active Substance: CLONIDINE
  6. METFORMIN HYDROCHLORIDE. [Concomitant]
     Active Substance: METFORMIN HYDROCHLORIDE
  7. FLUTICASONE PROPIONATE. [Concomitant]
     Active Substance: FLUTICASONE PROPIONATE
  8. HYDROCHLOROTHIAZIDE. [Concomitant]
     Active Substance: HYDROCHLOROTHIAZIDE
  9. SILDENAFIL (ANDA 206401) [Suspect]
     Active Substance: SILDENAFIL CITRATE
     Route: 048
     Dates: start: 20190424, end: 201907
  10. ASPIRIN. [Concomitant]
     Active Substance: ASPIRIN
  11. MONTELUKAST SODIUM. [Concomitant]
     Active Substance: MONTELUKAST SODIUM
  12. AMLODIPINE [Concomitant]
     Active Substance: AMLODIPINE BESYLATE
  13. BACLOFEN. [Concomitant]
     Active Substance: BACLOFEN
  14. JANUVIA [Concomitant]
     Active Substance: SITAGLIPTIN PHOSPHATE

REACTIONS (2)
  - Therapeutic product effect incomplete [Recovered/Resolved]
  - Product substitution issue [Recovered/Resolved]

NARRATIVE: CASE EVENT DATE: 20190424
